FAERS Safety Report 8601074-4 (Version None)
Quarter: 2012Q3

REPORT INFORMATION
  Report Type: 
  Country: None (occurrence: None)
  Receive Date: 20120817
  Receipt Date: 20120816
  Transmission Date: 20120928
  Serious: Yes (Life-Threatening, Hospitalization, Other)
  Sender: FDA-Public Use
  Company Number: IN-BAYER-2012-084019

PATIENT
  Age: 47 Year
  Sex: Female
  Weight: 54 kg

DRUGS (3)
  1. MOXIFLOXACIN [Suspect]
     Indication: COUGH
  2. ACETAMINOPHEN [Concomitant]
     Indication: PYREXIA
     Dosage: 500 MG, PRN, 2 TABLETS WITHIN 3 DAYS
     Route: 048
  3. MOXIFLOXACIN [Suspect]
     Indication: PYREXIA
     Dosage: 200 MG, BID
     Route: 048

REACTIONS (4)
  - BLOOD PRESSURE INCREASED [None]
  - LOSS OF CONSCIOUSNESS [None]
  - DEPRESSED LEVEL OF CONSCIOUSNESS [None]
  - HYPOGLYCAEMIA [None]
